FAERS Safety Report 4944672-1 (Version None)
Quarter: 2006Q1

REPORT INFORMATION
  Report Type: 
  Country: None (occurrence: None)
  Receive Date: 20060315
  Receipt Date: 20060303
  Transmission Date: 20060701
  Serious: Yes (Other)
  Sender: FDA-Public Use
  Company Number: JP-AVENTIS-200610721JP

PATIENT
  Sex: Male

DRUGS (2)
  1. AMARYL [Suspect]
     Indication: DIABETES MELLITUS
     Route: 048
  2. LIPITOR [Concomitant]
     Route: 048

REACTIONS (2)
  - BACK PAIN [None]
  - HEMIPLEGIA [None]
